FAERS Safety Report 21119719 (Version 2)
Quarter: 2022Q4

REPORT INFORMATION
  Report Type: Spontaneous
  Country: US (occurrence: US)
  Receive Date: 20220722
  Receipt Date: 20221117
  Transmission Date: 20230113
  Serious: Yes (Other)
  Sender: FDA-Public Use
  Company Number: US-BRISTOL-MYERS SQUIBB COMPANY-2022-076070

PATIENT
  Age: 79 Year
  Sex: Male
  Weight: 77.5 kg

DRUGS (9)
  1. POMALYST [Suspect]
     Active Substance: POMALIDOMIDE
     Indication: Plasma cell myeloma
     Dosage: C4 D1
     Route: 048
     Dates: start: 20220223
  2. POMALYST [Suspect]
     Active Substance: POMALIDOMIDE
     Dosage: C6 D1
     Route: 065
     Dates: start: 20220427
  3. POMALYST [Suspect]
     Active Substance: POMALIDOMIDE
     Dosage: C7 D1
     Route: 065
     Dates: start: 20220720
  4. POMALYST [Suspect]
     Active Substance: POMALIDOMIDE
     Dosage: C9 D1
     Route: 065
     Dates: start: 20220817
  5. POMALYST [Suspect]
     Active Substance: POMALIDOMIDE
     Dosage: C1
     Route: 048
     Dates: start: 20211201
  6. POMALYST [Suspect]
     Active Substance: POMALIDOMIDE
     Route: 048
     Dates: start: 20221101
  7. POMALYST [Suspect]
     Active Substance: POMALIDOMIDE
     Dosage: C5 D1
     Route: 065
     Dates: start: 20220330
  8. DARATUMUMAB [Concomitant]
     Active Substance: DARATUMUMAB
     Indication: Plasma cell myeloma
     Dates: start: 20211201
  9. DEXAMETHASONE [Concomitant]
     Active Substance: DEXAMETHASONE
     Indication: Plasma cell myeloma
     Dates: start: 20211201

REACTIONS (3)
  - Neutropenia [Unknown]
  - Fatigue [Recovering/Resolving]
  - Anxiety [Recovering/Resolving]

NARRATIVE: CASE EVENT DATE: 20220620
